FAERS Safety Report 23341696 (Version 2)
Quarter: 2024Q2

REPORT INFORMATION
  Report Type: Report from Study
  Country: NL (occurrence: NL)
  Receive Date: 20231227
  Receipt Date: 20240413
  Transmission Date: 20240716
  Serious: Yes (Death, Other)
  Sender: FDA-Public Use
  Company Number: NL-MYLANLABS-2022M1027040

PATIENT
  Age: 75 Year
  Sex: Male

DRUGS (1)
  1. CREON [Suspect]
     Active Substance: PANCRELIPASE AMYLASE\PANCRELIPASE LIPASE\PANCRELIPASE PROTEASE
     Indication: Pancreatic carcinoma
     Dosage: STRENGTH150 MG?FORTE MODIFIED RELEASE CAPSULE, 300 MG
     Route: 048
     Dates: start: 20210515

REACTIONS (6)
  - Death [Fatal]
  - Tumour compression [Unknown]
  - Anuria [Recovered/Resolved]
  - Pancreatic carcinoma [Unknown]
  - Vomiting [Recovering/Resolving]
  - Weight decreased [Unknown]

NARRATIVE: CASE EVENT DATE: 20210823
